FAERS Safety Report 16626450 (Version 2)
Quarter: 2019Q3

REPORT INFORMATION
  Report Type: Spontaneous
  Country: US (occurrence: US)
  Receive Date: 20190724
  Receipt Date: 20190809
  Transmission Date: 20191004
  Serious: No
  Sender: FDA-Public Use
  Company Number: US-ASTRAZENECA-2019SE94454

PATIENT
  Age: 68 Year
  Weight: 119.7 kg

DRUGS (2)
  1. NOVOLOG [Concomitant]
     Active Substance: INSULIN ASPART
     Indication: DIABETES MELLITUS
     Dosage: TWO TIMES A DAY
     Route: 058
  2. BYDUREON BCISE [Suspect]
     Active Substance: EXENATIDE
     Indication: APPETITE DISORDER
     Dosage: ONCE A WEEK
     Route: 058

REACTIONS (5)
  - Incorrect dose administered by device [Recovered/Resolved]
  - Device leakage [Unknown]
  - Device issue [Unknown]
  - Intentional product use issue [Not Recovered/Not Resolved]
  - Wrong technique in product usage process [Unknown]

NARRATIVE: CASE EVENT DATE: 2018
